FAERS Safety Report 7557059-2 (Version None)
Quarter: 2011Q2

REPORT INFORMATION
  Report Type: 
  Country: None (occurrence: None)
  Receive Date: 20110620
  Receipt Date: 20110607
  Transmission Date: 20111010
  Serious: Yes (Life-Threatening, Hospitalization)
  Sender: FDA-Public Use
  Company Number: US-ROCHE-725884

PATIENT
  Age: 64 Year
  Sex: Female
  Weight: 56.4 kg

DRUGS (3)
  1. PACLITAXEL [Suspect]
     Dosage: OVER 30 MINUTES ON DAYS1,8 AND15,EVERY 28 DAYS.LAST DOSE PRIOR TO SAE:01 JULY 2010.TOTALDOSE: 600MG
     Route: 065
     Dates: start: 20090921
  2. BEVACIZUMAB [Suspect]
     Dosage: OVER 30 TO 90 MINSON DAY1AND DAY15.LAST DOSE PRIOR TO SAE:01 JULY 2010.CYCLE:28DAY.TOTAL DOSE:1200MG
     Route: 042
     Dates: start: 20090921
  3. PACLITAXEL [Suspect]
     Dosage: PATIENT ON DOSE REDUCTION.UNABLE TO START CYCLE 11 DUE TO AES ASSOCIATED WITH PRIMARY AE.
     Route: 065
     Dates: start: 20100318

REACTIONS (10)
  - SEPTIC SHOCK [None]
  - SKIN INFECTION [None]
  - HYPONATRAEMIA [None]
  - EYE INFECTION [None]
  - ENCEPHALITIS [None]
  - SINUSITIS [None]
  - LUNG INFECTION [None]
  - ACUTE RESPIRATORY DISTRESS SYNDROME [None]
  - CARDIAC ARREST [None]
  - ENCEPHALITIC INFECTION [None]
